FAERS Safety Report 5399015-9 (Version None)
Quarter: 2007Q3

REPORT INFORMATION
  Report Type: 
  Country: None (occurrence: None)
  Receive Date: 20070723
  Receipt Date: 20070723
  Transmission Date: 20080115
  Serious: Yes (Hospitalization, Other)
  Sender: FDA-Public Use
  Company Number: None

PATIENT
  Age: 84 Year
  Sex: Male
  Weight: 47.1 kg

DRUGS (2)
  1. MEPERIDINE HCL [Suspect]
     Indication: SEDATION
     Dosage: 50 MG ONCE IV
     Route: 042
     Dates: start: 20070329, end: 20070329
  2. MIDAZOLAM HYDROCHLORIDE [Suspect]
     Dosage: 2MG ONCE IV
     Route: 042
     Dates: start: 20070329, end: 20070329

REACTIONS (2)
  - BRADYCARDIA [None]
  - HYPOTENSION [None]
